FAERS Safety Report 11093116 (Version 1)
Quarter: 2015Q2

REPORT INFORMATION
  Report Type: Spontaneous
  Country: US (occurrence: None)
  Receive Date: 20150428
  Receipt Date: 20150428
  Transmission Date: 20150821
  Serious: Yes (Other)
  Sender: FDA-Public Use
  Company Number: PHEH2014US016209

PATIENT
  Age: 51 Year
  Sex: Female

DRUGS (1)
  1. GILENYA [Suspect]
     Active Substance: FINGOLIMOD HYDROCHLORIDE
     Indication: MULTIPLE SCLEROSIS
     Route: 048
     Dates: start: 20140801

REACTIONS (8)
  - Abdominal pain upper [None]
  - Abdominal discomfort [None]
  - Oedema peripheral [None]
  - Macular oedema [None]
  - Gait disturbance [None]
  - Generalised oedema [None]
  - Drug ineffective [None]
  - Hemiparesis [None]

NARRATIVE: CASE EVENT DATE: 20140801
